FAERS Safety Report 14507739 (Version 1)
Quarter: 2018Q1

REPORT INFORMATION
  Report Type: Spontaneous
  Country: US (occurrence: US)
  Receive Date: 20180208
  Receipt Date: 20180208
  Transmission Date: 20180509
  Serious: No
  Sender: FDA-Public Use
  Company Number: US-PURDUE-USA-2018-0142295

PATIENT
  Age: 58 Year
  Sex: Male

DRUGS (1)
  1. BUPRENORPHINE TRANSDERMAL PATCH (SIMILAR TO NDA 21-306) [Suspect]
     Active Substance: BUPRENORPHINE
     Indication: PAIN
     Dosage: 20 MCG/HR, WEEKLY
     Route: 062
     Dates: start: 201712

REACTIONS (10)
  - Feeling abnormal [Not Recovered/Not Resolved]
  - Nausea [Not Recovered/Not Resolved]
  - Feeding disorder [Not Recovered/Not Resolved]
  - Muscle twitching [Unknown]
  - Nasopharyngitis [Not Recovered/Not Resolved]
  - Drug ineffective [Unknown]
  - Tremor [Not Recovered/Not Resolved]
  - Middle insomnia [Unknown]
  - Drug withdrawal syndrome [Unknown]
  - Breakthrough pain [Not Recovered/Not Resolved]

NARRATIVE: CASE EVENT DATE: 201712
